FAERS Safety Report 8764626 (Version 1)
Quarter: 2012Q4

REPORT INFORMATION
  Report Type: 
  Country: US (occurrence: US)
  Receive Date: 20120831
  Receipt Date: 20120831
  Transmission Date: 20130627
  Serious: No
  Sender: FDA-Public Use
  Company Number: US-ASTRAZENECA-2012SE58015

PATIENT
  Age: 41 Year
  Sex: Female
  Weight: 72.6 kg

DRUGS (3)
  1. CRESTOR [Suspect]
     Indication: BLOOD CHOLESTEROL INCREASED
     Route: 048
     Dates: start: 201205
  2. DEXILANT [Concomitant]
     Indication: HYPERCHLORHYDRIA
  3. CHOLESTEROL MEDICATIONS [Concomitant]

REACTIONS (1)
  - Alopecia [Not Recovered/Not Resolved]
